FAERS Safety Report 6701108-8 (Version None)
Quarter: 2010Q2

REPORT INFORMATION
  Report Type: 
  Country: None (occurrence: None)
  Receive Date: 20100428
  Receipt Date: 20100428
  Transmission Date: 20101027
  Serious: Yes (Disabling)
  Sender: FDA-Public Use
  Company Number: None

PATIENT
  Age: 56 Year
  Sex: Female
  Weight: 70.3075 kg

DRUGS (1)
  1. XIBROM [Suspect]
     Indication: DRY EYE
     Dosage: DROP IN EACH EYE TWICE
     Dates: start: 20070101, end: 20100201

REACTIONS (1)
  - EYE DISORDER [None]
